FAERS Safety Report 8208076 (Version 2)
Quarter: 2013Q3

REPORT INFORMATION
  Report Type: Report from Study
  Country: US (occurrence: US)
  Receive Date: 20111028
  Receipt Date: 20130815
  Transmission Date: 20140515
  Serious: Yes (Hospitalization, Other)
  Sender: FDA-Public Use
  Company Number: US-ABBOTT-11P-163-0842793-00

PATIENT
  Age: 87 Year
  Sex: Female
  Weight: 56.3 kg

DRUGS (15)
  1. HUMIRA 40 MG/ 0.8 ML PRE-FILLED SYRINGE [Suspect]
     Indication: PSORIASIS
     Dates: start: 201006, end: 201010
  2. HUMIRA 40 MG/ 0.8 ML PRE-FILLED SYRINGE [Suspect]
     Indication: PSORIATIC ARTHROPATHY
     Dates: end: 2012
  3. ATENOLOL [Concomitant]
     Indication: HYPERTENSION
  4. AMLODIPINE [Concomitant]
     Indication: HYPERTENSION
  5. LISINOPRIL [Concomitant]
     Indication: PRODUCT USED FOR UNKNOWN INDICATION
  6. CA WITH VIT D [Concomitant]
     Indication: PRODUCT USED FOR UNKNOWN INDICATION
  7. OMEGA 3 [Concomitant]
     Indication: PRODUCT USED FOR UNKNOWN INDICATION
  8. VITAMIN B12 [Concomitant]
     Indication: PRODUCT USED FOR UNKNOWN INDICATION
  9. DEPOMEDROL [Concomitant]
     Indication: PRODUCT USED FOR UNKNOWN INDICATION
  10. LEVOTHYROXINE [Concomitant]
     Indication: HYPOTHYROIDISM
  11. SERTRALINE [Concomitant]
     Indication: ANXIETY
  12. CENTRUM SILVER [Concomitant]
     Indication: VITAMIN SUPPLEMENTATION
  13. PRESERVATION [Concomitant]
     Indication: EYE DISORDER
  14. CLOPIDOGREL [Concomitant]
     Indication: CEREBROVASCULAR ACCIDENT PROPHYLAXIS
  15. UNKNOWN ANTIBIOTICS [Concomitant]

REACTIONS (21)
  - Squamous cell carcinoma of skin [Not Recovered/Not Resolved]
  - Hand deformity [Unknown]
  - Psoriasis [Not Recovered/Not Resolved]
  - Erythema [Not Recovered/Not Resolved]
  - Skin exfoliation [Not Recovered/Not Resolved]
  - Radiation skin injury [Not Recovered/Not Resolved]
  - Infection [Not Recovered/Not Resolved]
  - Drug dose omission [Not Recovered/Not Resolved]
  - Pain in extremity [Unknown]
  - Impaired healing [Unknown]
  - Grip strength decreased [Unknown]
  - Psoriatic arthropathy [Unknown]
  - Arthralgia [Unknown]
  - Pain in extremity [Unknown]
  - Pain in extremity [Unknown]
  - Pain [Unknown]
  - Infection [Recovered/Resolved]
  - Dysphonia [Not Recovered/Not Resolved]
  - Fall [Unknown]
  - Wrist fracture [Recovering/Resolving]
  - Upper limb fracture [Recovering/Resolving]
